FAERS Safety Report 5735922-2 (Version None)
Quarter: 2008Q2

REPORT INFORMATION
  Report Type: 
  Country: None (occurrence: None)
  Receive Date: 20080509
  Receipt Date: 20080509
  Transmission Date: 20081010
  Serious: Yes (Hospitalization)
  Sender: FDA-Public Use
  Company Number: None

PATIENT
  Age: 10 Year
  Sex: Male
  Weight: 31.7518 kg

DRUGS (2)
  1. SINGULAIR [Suspect]
     Indication: ASTHMA PROPHYLAXIS
     Dates: start: 20030101, end: 20080508
  2. SINGULAIR [Suspect]
     Indication: MULTIPLE ALLERGIES
     Dates: start: 20030101, end: 20080508

REACTIONS (1)
  - SUICIDE ATTEMPT [None]
